FAERS Safety Report 7591814-8 (Version None)
Quarter: 2011Q3

REPORT INFORMATION
  Report Type: 
  Country: None (occurrence: None)
  Receive Date: 20110701
  Receipt Date: 20110701
  Transmission Date: 20111222
  Serious: Yes (Other)
  Sender: FDA-Public Use
  Company Number: None

PATIENT
  Sex: Female
  Weight: 45.3597 kg

DRUGS (1)
  1. RECLAST [Suspect]
     Indication: OSTEOPOROSIS
     Dosage: 5MG ONCE IV
     Route: 042
     Dates: start: 20110621, end: 20110621

REACTIONS (3)
  - BONE PAIN [None]
  - ACTIVITIES OF DAILY LIVING IMPAIRED [None]
  - ABASIA [None]
